FAERS Safety Report 4580315-7 (Version None)
Quarter: 2005Q1

REPORT INFORMATION
  Report Type: 
  Country: None (occurrence: None)
  Receive Date: 20050214
  Receipt Date: 20020402
  Transmission Date: 20050727
  Serious: Yes (Hospitalization, Other)
  Sender: FDA-Public Use
  Company Number: US-GLAXOSMITHKLINE-A0365882A

PATIENT
  Age: 21 Year
  Sex: Female

DRUGS (2)
  1. LAMICTAL [Suspect]
     Indication: BIPOLAR I DISORDER
     Dosage: 100MG PER DAY
     Route: 048
  2. ESKALITH CR [Concomitant]
     Dosage: 450MG PER DAY

REACTIONS (6)
  - DRUG ERUPTION [None]
  - ORAL SOFT TISSUE DISORDER [None]
  - PRURITUS [None]
  - PYREXIA [None]
  - RASH MORBILLIFORM [None]
  - STEVENS-JOHNSON SYNDROME [None]
